FAERS Safety Report 20082878 (Version 1)
Quarter: 2021Q4

REPORT INFORMATION
  Report Type: Spontaneous
  Country: CN (occurrence: CN)
  Receive Date: 20211117
  Receipt Date: 20211117
  Transmission Date: 20220303
  Serious: Yes (Other)
  Sender: FDA-Public Use
  Company Number: CN-PFIZER INC-202101528164

PATIENT
  Age: 19 Year
  Sex: Female
  Weight: 65 kg

DRUGS (2)
  1. CARBOPROST TROMETHAMINE [Suspect]
     Active Substance: CARBOPROST TROMETHAMINE
     Indication: Uterine haemorrhage
     Dosage: 250 UG, 1X/DAY
     Route: 030
     Dates: start: 20211028, end: 20211028
  2. OXYTOCIN [Suspect]
     Active Substance: OXYTOCIN
     Indication: Therapeutic procedure
     Dosage: 20 IU, 1X/DAY
     Route: 015
     Dates: start: 20211028, end: 20211028

REACTIONS (3)
  - Nausea [Recovered/Resolved]
  - Vomiting [Recovered/Resolved]
  - Abdominal discomfort [Recovered/Resolved]

NARRATIVE: CASE EVENT DATE: 20211028
